FAERS Safety Report 5033609-5 (Version None)
Quarter: 2006Q2

REPORT INFORMATION
  Report Type: 
  Country: None (occurrence: None)
  Receive Date: 20060623
  Receipt Date: 20060614
  Transmission Date: 20061013
  Serious: Yes (Other)
  Sender: FDA-Public Use
  Company Number: US-JNJFOC-20060602388

PATIENT
  Sex: Female
  Weight: 40.37 kg

DRUGS (9)
  1. REMICADE [Suspect]
     Indication: RHEUMATOID ARTHRITIS
     Route: 042
  2. REMICADE [Suspect]
     Indication: CROHN'S DISEASE
     Dosage: Q 6-8 WEEKS
     Route: 042
  3. PREVACID [Concomitant]
     Indication: GASTROOESOPHAGEAL REFLUX DISEASE
  4. OXYCODONE HCL [Concomitant]
     Indication: PAIN
  5. VALIUM [Concomitant]
     Indication: NERVOUSNESS
  6. 6-MP [Concomitant]
     Indication: CROHN'S DISEASE
  7. BENADRYL [Concomitant]
     Indication: PREMEDICATION
  8. PREDNISONE [Concomitant]
     Indication: CROHN'S DISEASE
  9. PREDNISONE [Concomitant]
     Indication: RHEUMATOID ARTHRITIS

REACTIONS (9)
  - ANOREXIA [None]
  - CONTUSION [None]
  - DRUG WITHDRAWAL SYNDROME [None]
  - FATIGUE [None]
  - HYPERHIDROSIS [None]
  - LETHARGY [None]
  - PAIN [None]
  - THERAPEUTIC RESPONSE DECREASED [None]
  - UPPER RESPIRATORY TRACT INFECTION [None]
